FAERS Safety Report 4330961-0 (Version None)
Quarter: 2004Q1

REPORT INFORMATION
  Report Type: 
  Country: None (occurrence: None)
  Receive Date: 20040329
  Receipt Date: 20040317
  Transmission Date: 20041129
  Serious: Yes (Hospitalization)
  Sender: FDA-Public Use
  Company Number: US069840

PATIENT
  Age: 76 Year
  Sex: Female

DRUGS (5)
  1. EPOGEN [Suspect]
     Indication: ANAEMIA
     Dosage: 1 IN 1 WEEK, SC
     Route: 058
     Dates: start: 20040101
  2. FOLIC ACID [Concomitant]
  3. MULTI-VITAMIN [Concomitant]
  4. IRON [Concomitant]
  5. METOPROLOL SUCCINATE [Concomitant]

REACTIONS (5)
  - FREQUENT BOWEL MOVEMENTS [None]
  - GALLBLADDER OPERATION [None]
  - HYPERTENSION [None]
  - TINNITUS [None]
  - VIRAL INFECTION [None]
